FAERS Safety Report 10611809 (Version 4)
Quarter: 2015Q1

REPORT INFORMATION
  Report Type: Spontaneous
  Country: DK (occurrence: JP)
  Receive Date: 20141126
  Receipt Date: 20150324
  Transmission Date: 20150720
  Serious: Yes (Life-Threatening, Hospitalization)
  Sender: FDA-Public Use
  Company Number: JP-FRI-1000072705

PATIENT
  Age: 59 Year
  Sex: Female
  Weight: 48.5 kg

DRUGS (7)
  1. ROZEREM [Concomitant]
     Active Substance: RAMELTEON
     Indication: INSOMNIA
     Dosage: 8 MG
     Route: 048
     Dates: start: 20140924
  2. LEXAPRO [Suspect]
     Active Substance: ESCITALOPRAM OXALATE
     Indication: DEPRESSION
     Dosage: 10 MG
     Route: 048
     Dates: start: 20141119, end: 20141120
  3. LIVALO [Concomitant]
     Active Substance: PITAVASTATIN CALCIUM
     Indication: DYSLIPIDAEMIA
     Dosage: 1 MG
     Route: 048
     Dates: start: 20130717
  4. NICORANDIL [Concomitant]
     Active Substance: NICORANDIL
     Indication: HYPERTENSION
     Dosage: 15 MG
     Route: 048
     Dates: start: 20130718
  5. GASMOTIN [Concomitant]
     Active Substance: MOSAPRIDE CITRATE
     Indication: PRODUCT USED FOR UNKNOWN INDICATION
     Route: 048
  6. FRANDOL S [Concomitant]
     Indication: ANGINA PECTORIS
     Dosage: 1 MG
     Route: 062
     Dates: start: 20130717
  7. NIFEDIPINE CR [Concomitant]
     Active Substance: NIFEDIPINE
     Indication: HYPERTENSION
     Dosage: 40 MG
     Route: 048
     Dates: start: 20130718

REACTIONS (5)
  - Loss of consciousness [Recovered/Resolved]
  - Vomiting [None]
  - Faecal incontinence [None]
  - Nausea [None]
  - Urinary incontinence [None]

NARRATIVE: CASE EVENT DATE: 20141120
